FAERS Safety Report 5047542-6 (Version None)
Quarter: 2006Q3

REPORT INFORMATION
  Report Type: 
  Country: None (occurrence: None)
  Receive Date: 20060711
  Receipt Date: 20060626
  Transmission Date: 20061208
  Serious: Yes (Other)
  Sender: FDA-Public Use
  Company Number: CHWYE809026JUN06

PATIENT
  Sex: Male

DRUGS (1)
  1. ENBREL [Suspect]
     Indication: ANKYLOSING SPONDYLITIS
     Route: 058
     Dates: start: 20060301, end: 20060401

REACTIONS (4)
  - DERMATITIS BULLOUS [None]
  - DRUG ERUPTION [None]
  - INJECTION SITE REACTION [None]
  - PEMPHIGOID [None]
